FAERS Safety Report 5764701-5 (Version None)
Quarter: 2008Q2

REPORT INFORMATION
  Report Type: 
  Country: None (occurrence: None)
  Receive Date: 20080611
  Receipt Date: 20080529
  Transmission Date: 20081010
  Serious: Yes (Disabling)
  Sender: FDA-Public Use
  Company Number: JP-ELI_LILLY_AND_COMPANY-JP200805006057

PATIENT
  Age: 75 Year
  Sex: Male

DRUGS (3)
  1. GEMZAR [Suspect]
     Indication: GALLBLADDER CANCER
     Dosage: 1200 MG, OTHER
     Route: 042
     Dates: start: 20071001, end: 20080401
  2. GEMZAR [Suspect]
     Dosage: 1200 MG, OTHER
     Route: 042
     Dates: start: 20080501
  3. TS 1 [Concomitant]
     Indication: GALLBLADDER CANCER
     Route: 048
     Dates: start: 20080401, end: 20080501

REACTIONS (2)
  - CEREBRAL INFARCTION [None]
  - RETINAL ARTERY THROMBOSIS [None]
